FAERS Safety Report 9676441 (Version 2)
Quarter: 2013Q4

REPORT INFORMATION
  Report Type: Spontaneous
  Country: JP (occurrence: JP)
  Receive Date: 20131107
  Receipt Date: 20131204
  Transmission Date: 20140711
  Serious: Yes (Other)
  Sender: FDA-Public Use
  Company Number: CHPA2013JP016830

PATIENT
  Age: 18 Year
  Sex: Male

DRUGS (4)
  1. PURSENNID [Suspect]
     Indication: CONSTIPATION
     Dosage: 24 MG, QD
     Route: 048
     Dates: start: 20131022, end: 20131027
  2. LOXONIN [Suspect]
  3. ALLELOCK [Suspect]
     Route: 048
  4. CEFMETAZON [Suspect]
     Dosage: 1 G, QD
     Dates: start: 20131024

REACTIONS (1)
  - Hepatic function abnormal [Recovering/Resolving]
